FAERS Safety Report 4395218-0 (Version None)
Quarter: 2004Q3

REPORT INFORMATION
  Report Type: 
  Country: None (occurrence: None)
  Receive Date: 20040706
  Receipt Date: 20040618
  Transmission Date: 20050211
  Serious: Yes (Life-Threatening, Hospitalization)
  Sender: FDA-Public Use
  Company Number: 430010X04ITA

PATIENT
  Age: 50 Year
  Sex: Male

DRUGS (8)
  1. NOVANTRONE [Suspect]
     Indication: ACUTE PROMYELOCYTIC LEUKAEMIA
     Dosage: 18 MG, 1 IN 1 DAYS, INTRAVENOUS
     Route: 042
     Dates: start: 20040609, end: 20040615
  2. TRETINOIN [Suspect]
     Indication: ACUTE PROMYELOCYTIC LEUKAEMIA
     Dosage: 90 MG, 1 IN 1 DAYS
     Dates: start: 20040609, end: 20040615
  3. ANTINEOPLASTIC AGENTS [Suspect]
  4. ETOPOSIDE [Suspect]
     Indication: ACUTE PROMYELOCYTIC LEUKAEMIA
     Dosage: 190 MG, 1 IN 1 DAYS
     Dates: start: 20040609, end: 20040615
  5. FLUCONAZOLE [Concomitant]
  6. LEVOFLOXACIN [Concomitant]
  7. PREDNISONE [Concomitant]
  8. PANTOPRAZOLE [Concomitant]

REACTIONS (2)
  - CEREBRAL HAEMORRHAGE [None]
  - HAEMOGLOBIN DECREASED [None]
